FAERS Safety Report 12175468 (Version 1)
Quarter: 2016Q1

REPORT INFORMATION
  Report Type: Spontaneous
  Country: IT (occurrence: IT)
  Receive Date: 20160314
  Receipt Date: 20160314
  Transmission Date: 20160526
  Serious: Yes (Other)
  Sender: FDA-Public Use
  Company Number: IT-JNJFOC-20160306456

PATIENT
  Age: 37 Year
  Sex: Female
  Weight: 150 kg

DRUGS (3)
  1. INVEGA [Suspect]
     Active Substance: PALIPERIDONE
     Indication: PRODUCT USED FOR UNKNOWN INDICATION
     Route: 048
     Dates: start: 20160305, end: 20160305
  2. TOLEP [Suspect]
     Active Substance: OXCARBAZEPINE
     Indication: PRODUCT USED FOR UNKNOWN INDICATION
     Route: 048
     Dates: start: 20160305, end: 20160305
  3. METFORMIN [Suspect]
     Active Substance: METFORMIN HYDROCHLORIDE
     Indication: PRODUCT USED FOR UNKNOWN INDICATION
     Route: 048
     Dates: start: 20160305, end: 20160305

REACTIONS (4)
  - Self injurious behaviour [Unknown]
  - Sopor [Unknown]
  - Intentional overdose [Unknown]
  - Vomiting [Unknown]

NARRATIVE: CASE EVENT DATE: 20160305
